FAERS Safety Report 6094251-0 (Version None)
Quarter: 2009Q1

REPORT INFORMATION
  Report Type: 
  Country: None (occurrence: None)
  Receive Date: 20090219
  Receipt Date: 20081113
  Transmission Date: 20090719
  Serious: No
  Sender: FDA-Public Use
  Company Number: WAES 0811USA02165

PATIENT
  Age: 66 Year
  Sex: Male

DRUGS (5)
  1. JANUVIA [Suspect]
     Indication: DIABETES MELLITUS
     Dosage: 100 MG/DAILY/PO
     Route: 048
     Dates: start: 20081112
  2. LEVEMIR [Concomitant]
  3. LOPRESSOR [Concomitant]
  4. ZOCOR [Concomitant]
  5. METFORMIN HCL [Concomitant]

REACTIONS (1)
  - HEADACHE [None]
